FAERS Safety Report 18139255 (Version 1)
Quarter: 2020Q3

REPORT INFORMATION
  Report Type: Spontaneous
  Country: US (occurrence: US)
  Receive Date: 20200811
  Receipt Date: 20200811
  Transmission Date: 20201103
  Serious: No
  Sender: FDA-Public Use
  Company Number: None

PATIENT

DRUGS (1)
  1. BLUMEN CLEAR ADVANCED HAND SANITIZER [Suspect]
     Active Substance: ALCOHOL

REACTIONS (19)
  - Disturbance in attention [None]
  - Fatigue [None]
  - Blood methanol increased [None]
  - Chest discomfort [None]
  - Feeling hot [None]
  - Hot flush [None]
  - Feeling abnormal [None]
  - Hypersensitivity [None]
  - Photophobia [None]
  - Chest pain [None]
  - Recalled product administered [None]
  - Dizziness [None]
  - Recalled product [None]
  - Pollakiuria [None]
  - Tinnitus [None]
  - Hyperhidrosis [None]
  - Palpitations [None]
  - Vertigo [None]
  - Dyspnoea [None]
